FAERS Safety Report 14688035 (Version 1)
Quarter: 2018Q1

REPORT INFORMATION
  Report Type: Spontaneous
  Country: US (occurrence: US)
  Receive Date: 20180328
  Receipt Date: 20180328
  Transmission Date: 20180509
  Serious: No
  Sender: FDA-Public Use
  Company Number: US-PFIZER INC-2018126561

PATIENT
  Sex: Female
  Weight: 68 kg

DRUGS (2)
  1. NEURONTIN [Suspect]
     Active Substance: GABAPENTIN
     Indication: NEUROPATHY PERIPHERAL
     Dosage: 1 DF, UNK (1 TABLET)
  2. NEURONTIN [Suspect]
     Active Substance: GABAPENTIN
     Indication: HEADACHE
     Dosage: 200 MG, 2X/DAY (100MG TABLETS, 2 IN THE MORNING AND 2 AT NIGHT)

REACTIONS (2)
  - Limb discomfort [Unknown]
  - Product use in unapproved indication [Unknown]
